FAERS Safety Report 10241538 (Version 1)
Quarter: 2014Q2

REPORT INFORMATION
  Report Type: Spontaneous
  Country: IE (occurrence: IE)
  Receive Date: 20140617
  Receipt Date: 20140617
  Transmission Date: 20141212
  Serious: Yes (Disabling, Other)
  Sender: FDA-Public Use
  Company Number: IE-TEVA-488658ISR

PATIENT
  Age: 83 Year
  Sex: Male

DRUGS (5)
  1. RAMIPRIL TEVA PHARMA 1.25MG TABLETS [Suspect]
     Indication: BLOOD PRESSURE
     Dosage: 1.25 MILLIGRAM DAILY; TREATMENT IS DISCONTINUED
     Route: 048
     Dates: start: 20140425, end: 20140503
  2. FUROSEMIDE [Concomitant]
     Indication: BLOOD PRESSURE
     Route: 048
  3. ATORVASTATIN 20MG [Concomitant]
     Indication: BLOOD CHOLESTEROL INCREASED
     Route: 048
  4. CARDICOR [Concomitant]
     Indication: BLOOD PRESSURE
     Dosage: 1.25 MILLIGRAM DAILY;
     Route: 048
  5. CAPRIN 75 MG GASTRO-RESISTANT TABLETS [Concomitant]
     Indication: ANTICOAGULANT THERAPY
     Dosage: 75 MILLIGRAM DAILY;
     Route: 048

REACTIONS (4)
  - Dizziness [Recovered/Resolved]
  - Nausea [Recovered/Resolved]
  - Activities of daily living impaired [Recovered/Resolved]
  - Dizziness [None]
